FAERS Safety Report 9103898 (Version 2)
Quarter: 2013Q2

REPORT INFORMATION
  Report Type: Spontaneous
  Country: US (occurrence: US)
  Receive Date: 20130219
  Receipt Date: 20130508
  Transmission Date: 20140414
  Serious: Yes (Death)
  Sender: FDA-Public Use
  Company Number: US-WATSON-2013-02401

PATIENT
  Age: 90 Year
  Sex: Female
  Weight: 68 kg

DRUGS (5)
  1. GELNIQUE 3% (WATSON LABORATORIES) [Suspect]
     Indication: POLLAKIURIA
     Dosage: APPLY DAILY
     Route: 061
     Dates: start: 20120618
  2. GELNIQUE 3% (WATSON LABORATORIES) [Suspect]
     Indication: NOCTURIA
  3. ALPRAZOLAM [Concomitant]
     Indication: PRODUCT USED FOR UNKNOWN INDICATION
     Route: 065
  4. ASPIRIN [Concomitant]
     Indication: PRODUCT USED FOR UNKNOWN INDICATION
     Route: 065
  5. IMDUR [Concomitant]
     Indication: PRODUCT USED FOR UNKNOWN INDICATION
     Route: 065

REACTIONS (2)
  - Death [Fatal]
  - Rash [Unknown]
